FAERS Safety Report 15599725 (Version 1)
Quarter: 2018Q4

REPORT INFORMATION
  Report Type: Spontaneous
  Country: US (occurrence: US)
  Receive Date: 20181108
  Receipt Date: 20181108
  Transmission Date: 20190205
  Serious: Yes (Death, Hospitalization)
  Sender: FDA-Public Use
  Company Number: US-ALLERGAN-1852428US

PATIENT
  Age: 34 Year
  Sex: Female

DRUGS (1)
  1. TAYTULLA [Suspect]
     Active Substance: ETHINYL ESTRADIOL\NORETHINDRONE ACETATE
     Indication: PRODUCT USED FOR UNKNOWN INDICATION
     Route: 048

REACTIONS (5)
  - Brain death [Fatal]
  - Obstruction [Fatal]
  - Unresponsive to stimuli [Fatal]
  - Pain [Fatal]
  - Myocardial infarction [Fatal]

NARRATIVE: CASE EVENT DATE: 2018
